FAERS Safety Report 10129717 (Version 2)
Quarter: 2014Q2

REPORT INFORMATION
  Report Type: Spontaneous
  Country: DE (occurrence: None)
  Receive Date: 20140424
  Receipt Date: 20140610
  Transmission Date: 20141212
  Serious: Yes (Other)
  Sender: FDA-Public Use
  Company Number: 2014-19369

PATIENT
  Age: 80 Year
  Sex: Female
  Weight: 36 kg

DRUGS (3)
  1. EYLEA [Suspect]
     Indication: PRODUCT USED FOR UNKNOWN INDICATION
     Route: 031
     Dates: start: 20140324, end: 20140324
  2. EYLEA [Suspect]
     Indication: AGE-RELATED MACULAR DEGENERATION
     Route: 031
     Dates: start: 20140324, end: 20140324
  3. EYLEA [Suspect]
     Indication: CHOROIDAL NEOVASCULARISATION
     Route: 031
     Dates: start: 20140324, end: 20140324

REACTIONS (2)
  - Vitreous haemorrhage [None]
  - Vitreous floaters [None]
